FAERS Safety Report 9340259 (Version 1)
Quarter: 2013Q2

REPORT INFORMATION
  Report Type: Spontaneous
  Country: IL (occurrence: None)
  Receive Date: 20130605
  Receipt Date: 20130605
  Transmission Date: 20140414
  Serious: Yes (Hospitalization)
  Sender: FDA-Public Use
  Company Number: IL-011840

PATIENT
  Age: 55 Year
  Sex: Female

DRUGS (2)
  1. PICO-SALAX [Suspect]
     Indication: PRODUCT USED FOR UNKNOWN INDICATION
     Dosage: 1 DF, TOTAL, 1 SACHET
  2. ATORVASTATIN [Concomitant]

REACTIONS (5)
  - Hyponatraemia [None]
  - Convulsion [None]
  - Malaise [None]
  - Vomiting [None]
  - Asthenia [None]
